FAERS Safety Report 5928249-7 (Version None)
Quarter: 2008Q4

REPORT INFORMATION
  Report Type: 
  Country: None (occurrence: None)
  Receive Date: 20081022
  Receipt Date: 20081022
  Transmission Date: 20090506
  Serious: Yes (Other)
  Sender: FDA-Public Use
  Company Number: None

PATIENT
  Age: 39 Year
  Sex: Male
  Weight: 88.4514 kg

DRUGS (1)
  1. ABILIFY [Suspect]
     Indication: HALLUCINATION
     Dosage: 10 MG DAILY PO
     Route: 048

REACTIONS (1)
  - HALLUCINATION [None]
